FAERS Safety Report 5758390-3 (Version None)
Quarter: 2008Q2

REPORT INFORMATION
  Report Type: 
  Country: None (occurrence: None)
  Receive Date: 20080530
  Receipt Date: 20080515
  Transmission Date: 20081010
  Serious: Yes (Other)
  Sender: FDA-Public Use
  Company Number: DK-1166116

PATIENT
  Sex: Male

DRUGS (1)
  1. CYCLOGYL (CYCLOPENTOLATE HYDROCHLORIDE) 1 % SOLUTION EYE DROPS, SOLUTI [Suspect]
     Indication: OPHTHALMOLOGICAL EXAMINATION
     Route: 047
     Dates: start: 20080513, end: 20080513

REACTIONS (2)
  - AGGRESSION [None]
  - HALLUCINATION [None]
